FAERS Safety Report 5748919-3 (Version None)
Quarter: 2008Q2

REPORT INFORMATION
  Report Type: 
  Country: None (occurrence: None)
  Receive Date: 20080526
  Receipt Date: 20080513
  Transmission Date: 20081010
  Serious: Yes (Hospitalization)
  Sender: FDA-Public Use
  Company Number: US-BAYER-200823086NA

PATIENT
  Age: 70 Year
  Sex: Female
  Weight: 59 kg

DRUGS (3)
  1. AVELOX [Suspect]
     Indication: URINARY TRACT INFECTION
     Dosage: TOTAL DAILY DOSE: 400 MG  UNIT DOSE: 400 MG
     Route: 048
     Dates: start: 20041229, end: 20050104
  2. COUMADIN [Suspect]
     Indication: DEEP VEIN THROMBOSIS
     Dosage: TOTAL DAILY DOSE: 5 MG
     Route: 048
     Dates: start: 20030101
  3. SU-011,248 (SUITINIB MALATE) [Suspect]
     Indication: GASTROINTESTINAL STROMAL TUMOUR

REACTIONS (12)
  - ANAEMIA [None]
  - ANOREXIA [None]
  - CONTUSION [None]
  - COUGH [None]
  - DEHYDRATION [None]
  - DIZZINESS POSTURAL [None]
  - DYSPNOEA [None]
  - FATIGUE [None]
  - INTERNATIONAL NORMALISED RATIO INCREASED [None]
  - JAUNDICE [None]
  - NAUSEA [None]
  - VOMITING [None]
